FAERS Safety Report 12368687 (Version 1)
Quarter: 2016Q2

REPORT INFORMATION
  Report Type: Spontaneous
  Country: US (occurrence: US)
  Receive Date: 20160513
  Receipt Date: 20160513
  Transmission Date: 20160815
  Serious: Yes (Death, Hospitalization)
  Sender: FDA-Public Use
  Company Number: US-ABBVIE-16P-163-1625745-00

PATIENT
  Age: 63 Year
  Sex: Female

DRUGS (1)
  1. VENCLEXTA [Suspect]
     Active Substance: VENETOCLAX
     Indication: PRODUCT USED FOR UNKNOWN INDICATION
     Route: 048
     Dates: start: 20160420

REACTIONS (5)
  - Abdominal mass [Fatal]
  - Dehydration [Fatal]
  - Coeliac artery stenosis [Fatal]
  - Ileus [Fatal]
  - Gastrointestinal necrosis [Fatal]
